FAERS Safety Report 17345877 (Version 1)
Quarter: 2020Q1

REPORT INFORMATION
  Report Type: Spontaneous
  Country: US (occurrence: US)
  Receive Date: 20200129
  Receipt Date: 20200129
  Transmission Date: 20200409
  Serious: No
  Sender: FDA-Public Use
  Company Number: NVSC2020US022429

PATIENT
  Sex: Female

DRUGS (1)
  1. JADENU [Suspect]
     Active Substance: DEFERASIROX
     Indication: HAEMOCHROMATOSIS
     Dosage: UNK (3 TABLETS (540 MG) MORNING AND 4 TABLETS (720 MG) EVENING) ON EMPTY STOMACH OR WITH LIGHT MEAL
     Route: 048
     Dates: start: 202001

REACTIONS (2)
  - Gastroenteritis viral [Recovered/Resolved]
  - Product dose omission [Unknown]
